FAERS Safety Report 7224828-8 (Version None)
Quarter: 2011Q1

REPORT INFORMATION
  Report Type: 
  Country: None (occurrence: None)
  Receive Date: 20110113
  Receipt Date: 20110106
  Transmission Date: 20110831
  Serious: Yes (Other)
  Sender: FDA-Public Use
  Company Number: US-SANOFI-AVENTIS-2011SA001809

PATIENT
  Age: 51 Year
  Sex: Female

DRUGS (1)
  1. AMBIEN CR [Suspect]
     Indication: INSOMNIA
     Route: 048
     Dates: start: 20090901, end: 20100101

REACTIONS (6)
  - FALL [None]
  - CONTUSION [None]
  - HEAD INJURY [None]
  - CONCUSSION [None]
  - HEADACHE [None]
  - HAEMORRHAGE [None]
